FAERS Safety Report 18016154 (Version 4)
Quarter: 2021Q4

REPORT INFORMATION
  Report Type: Spontaneous
  Country: US (occurrence: US)
  Receive Date: 20200713
  Receipt Date: 20211201
  Transmission Date: 20220304
  Serious: Yes (Hospitalization)
  Sender: FDA-Public Use
  Company Number: US-MALLINCKRODT-T202003322

PATIENT
  Age: 68 Year
  Sex: Male

DRUGS (2)
  1. H.P. ACTHAR [Suspect]
     Active Substance: CORTICOTROPIN
     Indication: Rheumatoid arthritis
     Dosage: 80 UNITS, TWICE A WEEK
     Route: 058
     Dates: start: 201908
  2. H.P. ACTHAR [Suspect]
     Active Substance: CORTICOTROPIN
     Dosage: 80 UNITS (1 ML), TWO TIMES A WEEK
     Route: 058
     Dates: start: 202007

REACTIONS (2)
  - Prostate cancer [Unknown]
  - Prostatectomy [Unknown]

NARRATIVE: CASE EVENT DATE: 20200903
